FAERS Safety Report 9706700 (Version 3)
Quarter: 2014Q1

REPORT INFORMATION
  Report Type: Report from Study
  Country: US (occurrence: US)
  Receive Date: 20131125
  Receipt Date: 20140214
  Transmission Date: 20141002
  Serious: Yes (Hospitalization)
  Sender: FDA-Public Use
  Company Number: US-ROCHE-1294293

PATIENT
  Age: 45 Year
  Sex: Female
  Weight: 111.59 kg

DRUGS (44)
  1. TRASTUZUMAB [Suspect]
     Indication: BREAST CANCER
     Dosage: LOADING DOSE AS PER PROTOCOL.?LAST DOSE PRIOR TO SAE:3/OCT/2013
     Route: 042
     Dates: start: 20121101, end: 20121101
  2. TRASTUZUMAB [Suspect]
     Dosage: MAINTENENCE DOSE AS PER PROTOCOL.?LAST DOSE PRIOR TO SAE:31/OCT/2013
     Route: 042
     Dates: start: 20121122
  3. SINGULAR [Concomitant]
     Route: 065
  4. XANAX [Concomitant]
     Indication: ANXIETY
     Route: 048
     Dates: start: 20130523
  5. ALBUTEROL [Concomitant]
     Dosage: 1 PUFF
     Route: 065
     Dates: start: 20130615, end: 20130617
  6. SYMBICORT [Concomitant]
     Dosage: 2 PUFFS
     Route: 065
  7. FLEXERIL (UNITED STATES) [Concomitant]
     Indication: BACK PAIN
     Route: 048
     Dates: start: 201208, end: 20130702
  8. FLEXERIL (UNITED STATES) [Concomitant]
     Indication: NEUROPATHY PERIPHERAL
     Route: 048
     Dates: start: 20130807
  9. METFORMIN [Concomitant]
     Indication: DIABETES MELLITUS
     Dosage: 1000
     Route: 065
     Dates: start: 201206, end: 201307
  10. METFORMIN [Concomitant]
     Route: 048
     Dates: start: 20130703
  11. PREDNISONE [Concomitant]
     Indication: ASTHMA
     Route: 048
  12. LYRICA [Concomitant]
     Indication: NEUROPATHY PERIPHERAL
     Route: 048
     Dates: start: 20120824, end: 20130702
  13. LYRICA [Concomitant]
     Route: 065
     Dates: start: 20130703
  14. EFFEXOR [Concomitant]
     Indication: DEPRESSION
     Route: 048
     Dates: start: 20121012, end: 20130523
  15. PRILOSEC [Concomitant]
     Indication: GASTROOESOPHAGEAL REFLUX DISEASE
     Route: 048
     Dates: start: 2010
  16. COMPAZINE [Concomitant]
     Route: 048
     Dates: start: 20121101
  17. ZOFRAN [Concomitant]
     Indication: NAUSEA
     Route: 048
     Dates: start: 20121101
  18. NORMAL SALINE [Concomitant]
     Route: 042
     Dates: start: 20121101, end: 20121101
  19. SOLU-MEDROL [Concomitant]
     Indication: INFUSION RELATED REACTION
     Route: 042
  20. NEULASTA [Concomitant]
     Indication: NEUTROPENIA
     Route: 058
     Dates: start: 20120902, end: 20121127
  21. NEULASTA [Concomitant]
     Route: 058
     Dates: start: 20121120, end: 20130301
  22. TYLENOL [Concomitant]
     Indication: MYALGIA
     Dosage: DOSE: 1-2 TABS
     Route: 048
     Dates: start: 20120405
  23. IMODIUM [Concomitant]
     Indication: DIARRHOEA
     Dosage: DOSE- 1-2 TABS
     Route: 048
     Dates: start: 20120105
  24. DIFLUCAN [Concomitant]
     Route: 048
     Dates: start: 20120105, end: 20121105
  25. SEPTRA DS [Concomitant]
     Indication: STAPHYLOCOCCAL SKIN INFECTION
     Route: 048
     Dates: start: 20120121, end: 20121201
  26. SEPTRA DS [Concomitant]
     Route: 048
     Dates: start: 20121202, end: 20121202
  27. SEPTRA DS [Concomitant]
     Route: 048
     Dates: start: 20121227, end: 20130116
  28. BACTRIM [Concomitant]
     Indication: STAPHYLOCOCCAL SKIN INFECTION
     Route: 048
     Dates: start: 20130217, end: 20130228
  29. HYDROGEN PEROXIDE [Concomitant]
     Indication: STAPHYLOCOCCAL SKIN INFECTION
     Route: 061
     Dates: start: 20121121, end: 20121201
  30. DAPTOMYCIN [Concomitant]
     Indication: STAPHYLOCOCCAL SKIN INFECTION
     Route: 042
     Dates: start: 20121116, end: 20121120
  31. ZOSYN [Concomitant]
     Indication: STAPHYLOCOCCAL SKIN INFECTION
     Route: 042
     Dates: start: 20121116, end: 20121120
  32. COUMADIN [Concomitant]
     Indication: PULMONARY EMBOLISM
     Route: 048
     Dates: start: 20121220, end: 20130124
  33. VITAMIN B6 [Concomitant]
     Indication: NEUROPATHY PERIPHERAL
     Route: 048
     Dates: start: 20130131
  34. KEFLEX [Concomitant]
     Indication: ERYTHEMA
     Route: 048
     Dates: start: 20130613, end: 20130621
  35. Z-PAK [Concomitant]
     Route: 048
     Dates: start: 20130703, end: 20130809
  36. AMBIEN [Concomitant]
     Indication: INSOMNIA
     Route: 048
     Dates: start: 20130725
  37. MIRALAX [Concomitant]
     Indication: CONSTIPATION
     Dosage: 1 CAP
     Route: 048
     Dates: start: 20130912
  38. MAGNESIUM CITRATE [Concomitant]
     Indication: CONSTIPATION
     Route: 048
     Dates: start: 20130914, end: 20130914
  39. PROTONIX (UNITED STATES) [Concomitant]
     Indication: GASTROOESOPHAGEAL REFLUX DISEASE
     Route: 042
     Dates: start: 20130614, end: 20130614
  40. PROTONIX (UNITED STATES) [Concomitant]
     Route: 042
     Dates: start: 20130615, end: 20130617
  41. INSULIN [Concomitant]
     Indication: DIABETES MELLITUS
     Route: 058
     Dates: start: 20130614, end: 20130617
  42. LORTAB [Concomitant]
     Indication: BACK PAIN
     Dosage: DOSE: 10/500 MG, Q4-6
     Route: 048
     Dates: start: 201208
  43. PERTUZUMAB [Suspect]
     Indication: BREAST CANCER
     Dosage: LOADING DOSE AS PER PROTOCOL.
     Route: 042
     Dates: start: 20121101, end: 20121101
  44. PERTUZUMAB [Suspect]
     Dosage: MAINTENENCE DOSE AS PER PROTOCOL.?LAST DOSE PRIOR TO DYSPNEA ONSET:3/OCT/2013?LAST DOSE PRIOR TO ACU
     Route: 042
     Dates: start: 20121122

REACTIONS (1)
  - Asthma [Recovered/Resolved]
